FAERS Safety Report 8851312 (Version 1)
Quarter: 2012Q4

REPORT INFORMATION
  Report Type: 
  Country: CA (occurrence: CA)
  Receive Date: 20121020
  Receipt Date: 20121020
  Transmission Date: 20130627
  Serious: Yes (Other)
  Sender: FDA-Public Use
  Company Number: PHMT2007CA01843

PATIENT
  Sex: Male

DRUGS (3)
  1. SANDOSTATIN LAR [Suspect]
     Indication: CARCINOID TUMOUR
     Dosage: 60 mg every 3 weeks
     Route: 030
     Dates: start: 20070530
  2. SANDOSTATIN LAR [Suspect]
     Dates: start: 20080508
  3. TYLENOL WITH CODEINE [Concomitant]

REACTIONS (5)
  - Gout [Unknown]
  - Hypertension [Unknown]
  - Diarrhoea [Recovered/Resolved]
  - Hypotension [Unknown]
  - Heart rate decreased [Unknown]
